FAERS Safety Report 21349049 (Version 1)
Quarter: 2022Q3

REPORT INFORMATION
  Report Type: Spontaneous
  Country: FR (occurrence: FR)
  Receive Date: 20220919
  Receipt Date: 20220919
  Transmission Date: 20221026
  Serious: Yes (Hospitalization)
  Sender: FDA-Public Use
  Company Number: FR-AFSSAPS-AN20221760

PATIENT
  Age: 6 Year
  Sex: Female

DRUGS (2)
  1. TEMOZOLOMIDE [Suspect]
     Active Substance: TEMOZOLOMIDE
     Indication: Malignant glioma
     Dosage: 60 MILLIGRAM, DAILY
     Route: 048
     Dates: start: 20220413, end: 20220719
  2. OPDIVO [Suspect]
     Active Substance: NIVOLUMAB
     Indication: Malignant glioma
     Dosage: 124 MILLIGRAM, IN TOTAL
     Route: 040
     Dates: start: 20220413, end: 20220427

REACTIONS (2)
  - Pyrexia [Recovered/Resolved]
  - Immune system disorder [Recovered/Resolved]

NARRATIVE: CASE EVENT DATE: 20220416
